FAERS Safety Report 6862998-1 (Version None)
Quarter: 2010Q3

REPORT INFORMATION
  Report Type: 
  Country: None (occurrence: None)
  Receive Date: 20100721
  Receipt Date: 20100709
  Transmission Date: 20110219
  Serious: Yes (Other)
  Sender: FDA-Public Use
  Company Number: US-PFIZER INC-2010088611

PATIENT
  Sex: Female
  Weight: 86.168 kg

DRUGS (7)
  1. ZOLOFT [Suspect]
     Indication: MULTIPLE FRACTURES
     Dosage: 100 MG, 1X/DAY
     Route: 048
  2. LYRICA [Suspect]
     Indication: ANKLE FRACTURE
     Dosage: 75 MG, 2X/DAY
     Route: 048
     Dates: start: 20100705, end: 20100706
  3. ATENOLOL [Concomitant]
     Dosage: UNK
  4. SYNTHROID [Concomitant]
     Indication: THYROID DISORDER
     Dosage: UNK
  5. MOBIC [Concomitant]
     Dosage: UNK MG, UNK
  6. CRESTOR [Concomitant]
     Dosage: 20 MG, UNK
  7. ACETYLSALICYLIC ACID [Concomitant]
     Dosage: 81 MG, UNK

REACTIONS (4)
  - ANKLE FRACTURE [None]
  - DIZZINESS [None]
  - FALL [None]
  - LIMB INJURY [None]
